FAERS Safety Report 20055780 (Version 3)
Quarter: 2022Q1

REPORT INFORMATION
  Report Type: Report from Study
  Country: IL (occurrence: IL)
  Receive Date: 20211111
  Receipt Date: 20220126
  Transmission Date: 20220423
  Serious: Yes (Other)
  Sender: FDA-Public Use
  Company Number: IL-JNJFOC-20210236601

PATIENT
  Age: 82 Year
  Sex: Female

DRUGS (7)
  1. STELARA [Suspect]
     Active Substance: USTEKINUMAB
     Indication: Psoriasis
     Dosage: WEEK 0,4,12
     Route: 058
     Dates: start: 20210124, end: 20211226
  2. STELARA [Suspect]
     Active Substance: USTEKINUMAB
     Dosage: STELARA PRE-FILLED SYRINGE - ULTRASAFE 90.00 MG/ML
     Route: 058
     Dates: start: 20210516
  3. STELARA [Suspect]
     Active Substance: USTEKINUMAB
     Dosage: WEEK 0,4,12
     Route: 058
     Dates: start: 20210221
  4. STELARA [Suspect]
     Active Substance: USTEKINUMAB
     Dosage: WEEK 0,4,12
     Route: 058
     Dates: start: 20210124, end: 20211226
  5. PLAVIX [Concomitant]
     Active Substance: CLOPIDOGREL BISULFATE
  6. BISOPROLOL FUMARATE [Concomitant]
     Active Substance: BISOPROLOL FUMARATE
  7. ASPIRIN [Concomitant]
     Active Substance: ASPIRIN

REACTIONS (5)
  - Parkinson^s disease [Unknown]
  - Psoriasis [Not Recovered/Not Resolved]
  - Drug ineffective [Unknown]
  - Underdose [Unknown]
  - Device deployment issue [Unknown]

NARRATIVE: CASE EVENT DATE: 20210101
